FAERS Safety Report 25789910 (Version 1)
Quarter: 2025Q3

REPORT INFORMATION
  Report Type: Spontaneous
  Country: US (occurrence: US)
  Receive Date: 20250911
  Receipt Date: 20250911
  Transmission Date: 20251021
  Serious: Yes (Other)
  Sender: IMMUNOCORE
  Company Number: US-IMMUNOCORE, LTD.-2025-IMC-004679

PATIENT
  Sex: Female

DRUGS (3)
  1. TEBENTAFUSP [Suspect]
     Active Substance: TEBENTAFUSP
     Indication: Product used for unknown indication
     Dates: start: 20250812, end: 20250812
  2. TEBENTAFUSP [Suspect]
     Active Substance: TEBENTAFUSP
  3. TEBENTAFUSP [Suspect]
     Active Substance: TEBENTAFUSP
     Dates: start: 20250826, end: 20250826

REACTIONS (3)
  - Facial paralysis [Unknown]
  - Thunderclap headache [Unknown]
  - Cytokine release syndrome [Unknown]

NARRATIVE: CASE EVENT DATE: 20250826
